FAERS Safety Report 6837381-5 (Version None)
Quarter: 2010Q3

REPORT INFORMATION
  Report Type: 
  Country: None (occurrence: None)
  Receive Date: 20100713
  Receipt Date: 20070510
  Transmission Date: 20110219
  Serious: No
  Sender: FDA-Public Use
  Company Number: US-PFIZER INC-2007038694

PATIENT
  Sex: Female
  Weight: 60.4 kg

DRUGS (5)
  1. CHANTIX [Suspect]
     Indication: SMOKING CESSATION THERAPY
     Dates: start: 20070401
  2. TRAZODONE HYDROCHLORIDE [Concomitant]
  3. DETROL [Concomitant]
  4. PREMARIN [Concomitant]
  5. VYTORIN [Concomitant]

REACTIONS (1)
  - NAUSEA [None]
